FAERS Safety Report 9524313 (Version 1)
Quarter: 2013Q3

REPORT INFORMATION
  Report Type: Spontaneous
  Country: US (occurrence: None)
  Receive Date: 20130912
  Receipt Date: 20130912
  Transmission Date: 20140515
  Serious: Yes (Other)
  Sender: FDA-Public Use
  Company Number: None

PATIENT
  Sex: Male

DRUGS (7)
  1. SIMVASTATIN [Suspect]
     Indication: BLOOD CHOLESTEROL
     Dosage: 80 MG ONE TAB AT NIGHT ORAL
     Route: 048
     Dates: start: 2010, end: 201306
  2. ENALAPRIL [Concomitant]
  3. SIMVASTATIN [Concomitant]
  4. HYDROCODONE/APAP [Concomitant]
  5. ASA [Concomitant]
  6. ZOLPIDEM [Concomitant]
  7. VITAMIN D [Concomitant]

REACTIONS (4)
  - Gingival pain [None]
  - Gingival inflammation [None]
  - Tooth extraction [None]
  - Denture wearer [None]
